FAERS Safety Report 10069823 (Version 1)
Quarter: 2014Q2

REPORT INFORMATION
  Report Type: Spontaneous
  Country: US (occurrence: US)
  Receive Date: 20140410
  Receipt Date: 20140410
  Transmission Date: 20141212
  Serious: No
  Sender: FDA-Public Use
  Company Number: US-PFIZER INC-2014099885

PATIENT
  Age: 50 Year
  Sex: Male
  Weight: 108.84 kg

DRUGS (2)
  1. CELEBREX [Suspect]
     Indication: NECK PAIN
     Dosage: 200 MG, DAILY
  2. TYLENOL [Concomitant]
     Indication: NECK PAIN
     Dosage: UNK

REACTIONS (1)
  - Drug effect decreased [Unknown]
